FAERS Safety Report 5138744-9 (Version None)
Quarter: 2006Q4

REPORT INFORMATION
  Report Type: 
  Country: None (occurrence: None)
  Receive Date: 20061030
  Receipt Date: 20061019
  Transmission Date: 20070319
  Serious: Yes (Other)
  Sender: FDA-Public Use
  Company Number: US-ROCHE-468255

PATIENT
  Age: 43 Year
  Sex: Female

DRUGS (8)
  1. PEGASYS [Suspect]
     Indication: HEPATITIS C
     Dosage: FREQUENCY=WEEKLY. STRENGTH= 180MCG/0.5CC
     Route: 058
     Dates: start: 20060826
  2. RIBAVIRIN [Suspect]
     Indication: HEPATITIS C
     Route: 048
     Dates: start: 20060826
  3. ZYPREXA [Concomitant]
     Indication: BIPOLAR DISORDER
     Dosage: PATIENT RECEIVED 2.5 MG AT BEDTIME UNTIL OCT 2006 (EST) WHEN DOSAGE WAS ADJUSTED TO 5 MG AT BEDTIME+
     Route: 048
  4. SEROQUEL [Concomitant]
     Indication: BIPOLAR DISORDER
     Dosage: PATIENT RECEIVED 50 MG AT BEDTIME UNTIL OCT 2006 (EST) WHEN DOSAGE WAS ADJUSTED TO 75 MG AT BEDTIME+
     Route: 048
  5. PROVIGIL [Concomitant]
     Indication: FATIGUE
     Dosage: PATIENT RECEIVED 100 MG DAILY UNTIL OCT 2006 (EST) WHEN DOSAGE WAS ADJUSTED TO 50 MG DAILY.
     Route: 048
  6. LAMICTAL [Concomitant]
     Route: 048
  7. NEURONTIN [Concomitant]
     Route: 048
  8. VALTREX [Concomitant]
     Route: 048

REACTIONS (5)
  - CRYING [None]
  - FATIGUE [None]
  - GLOSSODYNIA [None]
  - MANIA [None]
  - STOMATITIS [None]
